FAERS Safety Report 16569085 (Version 7)
Quarter: 2021Q3

REPORT INFORMATION
  Report Type: Spontaneous
  Country: DE (occurrence: DE)
  Receive Date: 20190713
  Receipt Date: 20210813
  Transmission Date: 20211014
  Serious: Yes (Other)
  Sender: FDA-Public Use
  Company Number: PHHY2019DE158696

PATIENT
  Sex: Male

DRUGS (8)
  1. HCT [Concomitant]
     Active Substance: HYDROCHLOROTHIAZIDE
     Indication: PRODUCT USED FOR UNKNOWN INDICATION
     Dosage: 1 DF, QD (MORNING)
     Route: 065
  2. BELOC ZOK [Concomitant]
     Active Substance: METOPROLOL SUCCINATE
     Indication: PRODUCT USED FOR UNKNOWN INDICATION
     Dosage: 47.5 MG, PRN
     Route: 065
  3. VALSARTAN HEXAL 80 MG FILMTABLETTEN [Suspect]
     Active Substance: VALSARTAN
     Dosage: 160 MG, QD (IN SUMMER, IN MORNING)
     Route: 065
     Dates: start: 2013, end: 201807
  4. VALSACOR [Concomitant]
     Active Substance: VALSARTAN
     Indication: PRODUCT USED FOR UNKNOWN INDICATION
     Dosage: 0.5 DF, BID (MORNING AND EVENING)
     Route: 065
  5. AZARGA [Concomitant]
     Active Substance: BRINZOLAMIDE\TIMOLOL MALEATE
     Indication: PRODUCT USED FOR UNKNOWN INDICATION
     Dosage: UNK (10 MG/ML+5 MG/ML)
     Route: 065
  6. VALSARTAN HEXAL 80 MG FILMTABLETTEN [Suspect]
     Active Substance: VALSARTAN
     Indication: HYPERTENSION
     Dosage: UNK
     Route: 065
     Dates: start: 201112, end: 201804
  7. VALSARTAN HEXAL 80 MG FILMTABLETTEN [Suspect]
     Active Substance: VALSARTAN
     Dosage: 80 MG, BID (MORNING AND EVENING)
     Route: 065
     Dates: start: 201201, end: 2013
  8. VALSARTAN HEXAL 80 MG FILMTABLETTEN [Suspect]
     Active Substance: VALSARTAN
     Dosage: 80 MG, BID (MORNING AND EVENING)
     Route: 065
     Dates: start: 2016, end: 2016

REACTIONS (57)
  - Non-Hodgkin^s lymphoma unspecified histology aggressive stage IV [Recovered/Resolved]
  - Metastatic neoplasm [Not Recovered/Not Resolved]
  - Renal cyst [Unknown]
  - Ligamentum flavum hypertrophy [Unknown]
  - Intervertebral disc calcification [Unknown]
  - Vitamin D deficiency [Unknown]
  - Tendon rupture [Unknown]
  - Headache [Unknown]
  - Synovial cyst [Unknown]
  - Benign prostatic hyperplasia [Unknown]
  - Mobility decreased [Unknown]
  - Hyporeflexia [Unknown]
  - Hydrocele [Unknown]
  - Arteriosclerosis [Unknown]
  - Hypoaesthesia [Unknown]
  - Rhinorrhoea [Unknown]
  - Osteochondrosis [Unknown]
  - Vertebral foraminal stenosis [Unknown]
  - Fear [Not Recovered/Not Resolved]
  - Joint effusion [Unknown]
  - Chondropathy [Unknown]
  - Glaucoma [Unknown]
  - Nephrolithiasis [Unknown]
  - Blood pressure increased [Unknown]
  - Folate deficiency [Unknown]
  - Spinal osteoarthritis [Unknown]
  - Back pain [Unknown]
  - Intervertebral disc disorder [Unknown]
  - Diplopia [Unknown]
  - Dizziness [Unknown]
  - Contusion [Unknown]
  - Hyperhidrosis [Unknown]
  - Night sweats [Recovered/Resolved]
  - Lymphoma [Unknown]
  - Ocular hypertension [Unknown]
  - Aortic valve incompetence [Unknown]
  - Intervertebral disc protrusion [Unknown]
  - Malabsorption [Unknown]
  - Zinc deficiency [Unknown]
  - Meniscus injury [Unknown]
  - Flank pain [Unknown]
  - Lymphadenopathy [Unknown]
  - Raynaud^s phenomenon [Unknown]
  - Quality of life decreased [Not Recovered/Not Resolved]
  - Osteoarthritis [Unknown]
  - Aortic arteriosclerosis [Unknown]
  - Lumbar spinal stenosis [Unknown]
  - Spinal pain [Unknown]
  - Spinal disorder [Unknown]
  - Autonomic nervous system imbalance [Unknown]
  - Haematuria [Unknown]
  - Bronchitis [Unknown]
  - General physical health deterioration [Unknown]
  - Oedema peripheral [Unknown]
  - Paresis [Unknown]
  - Pyrexia [Unknown]
  - Performance status decreased [Unknown]

NARRATIVE: CASE EVENT DATE: 201201
